FAERS Safety Report 6658630-2 (Version None)
Quarter: 2010Q1

REPORT INFORMATION
  Report Type: 
  Country: None (occurrence: None)
  Receive Date: 20100330
  Receipt Date: 20100326
  Transmission Date: 20100710
  Serious: Yes (Hospitalization)
  Sender: FDA-Public Use
  Company Number: GB-BRISTOL-MYERS SQUIBB COMPANY-15037716

PATIENT
  Age: 89 Year
  Sex: Female

DRUGS (7)
  1. BENDROFLUMETHIAZIDE [Suspect]
     Indication: HYPERTENSION
     Route: 048
     Dates: start: 20080101, end: 20100318
  2. FLUDROCORTISONE ACETATE [Suspect]
     Indication: ORTHOSTATIC HYPOTENSION
     Route: 048
     Dates: start: 20080101
  3. AMLODIPINE [Concomitant]
  4. ASPIRIN [Concomitant]
  5. CANDESARTAN [Concomitant]
  6. QUININE SULFATE [Concomitant]
  7. SIMVASTATIN [Concomitant]

REACTIONS (3)
  - ARRHYTHMIA [None]
  - HYPOKALAEMIA [None]
  - LOSS OF CONSCIOUSNESS [None]
